FAERS Safety Report 9383475 (Version 2)
Quarter: 2013Q4

REPORT INFORMATION
  Report Type: Spontaneous
  Country: US (occurrence: US)
  Receive Date: 20130704
  Receipt Date: 20131010
  Transmission Date: 20140711
  Serious: Yes (Other)
  Sender: FDA-Public Use
  Company Number: US-PFIZER INC-2013195498

PATIENT
  Age: 7 Month
  Sex: Male

DRUGS (2)
  1. INFANT ADVIL CONCENTRATED DROPS [Suspect]
     Indication: PYREXIA
     Dosage: UNK
     Dates: start: 20130630
  2. INFANT ADVIL CONCENTRATED DROPS [Suspect]
     Indication: GINGIVAL DISORDER

REACTIONS (1)
  - Hyperventilation [Unknown]
